FAERS Safety Report 7406562-4 (Version None)
Quarter: 2011Q2

REPORT INFORMATION
  Report Type: 
  Country: None (occurrence: None)
  Receive Date: 20110411
  Receipt Date: 20110406
  Transmission Date: 20111010
  Serious: Yes (Death)
  Sender: FDA-Public Use
  Company Number: NL-MEDIMMUNE-MEDI-0012948

PATIENT
  Sex: Male
  Weight: 7.67 kg

DRUGS (1)
  1. SYNAGIS [Suspect]
     Route: 030
     Dates: start: 20110218, end: 20110301

REACTIONS (2)
  - RESPIRATORY TRACT INFECTION [None]
  - DYSPHAGIA [None]
